FAERS Safety Report 9329106 (Version 2)
Quarter: 2013Q3

REPORT INFORMATION
  Report Type: Spontaneous
  Country: US (occurrence: US)
  Receive Date: 20130604
  Receipt Date: 20130905
  Transmission Date: 20140515
  Serious: Yes (Hospitalization)
  Sender: FDA-Public Use
  Company Number: US-GLAXOSMITHKLINE-A1025441A

PATIENT
  Age: 58 Year
  Sex: Female
  Weight: 40.5 kg

DRUGS (9)
  1. LOVAZA [Suspect]
     Indication: PRODUCT USED FOR UNKNOWN INDICATION
     Dosage: 1G UNKNOWN
     Route: 048
     Dates: start: 20130406
  2. KOMBIGLYZE XR [Concomitant]
  3. LANTUS [Concomitant]
  4. VICTOZA [Concomitant]
  5. CALCIUM [Concomitant]
  6. DIOVAN [Concomitant]
  7. NYSTATIN TOPICAL [Concomitant]
  8. CRESTOR [Concomitant]
  9. ASPIRIN [Concomitant]

REACTIONS (1)
  - Hospitalisation [Recovered/Resolved]
